FAERS Safety Report 5625965-1 (Version None)
Quarter: 2008Q1

REPORT INFORMATION
  Report Type: 
  Country: None (occurrence: None)
  Receive Date: 20080211
  Receipt Date: 20071211
  Transmission Date: 20080703
  Serious: Yes (Other)
  Sender: FDA-Public Use
  Company Number: 2007S1013349

PATIENT
  Age: 86 Year
  Sex: Male

DRUGS (2)
  1. INDAPAMIDE [Suspect]
  2. POTASSIUM (POTASSIUM) [Suspect]

REACTIONS (2)
  - HYPERKALAEMIA [None]
  - OVERDOSE [None]
